FAERS Safety Report 6423697-3 (Version None)
Quarter: 2009Q4

REPORT INFORMATION
  Report Type: 
  Country: None (occurrence: None)
  Receive Date: 20091102
  Receipt Date: 20091029
  Transmission Date: 20100525
  Serious: Yes (Hospitalization)
  Sender: FDA-Public Use
  Company Number: FR-B.I. PHARMACEUTICALS,INC./RIDGEFIELD-2009-DE-06488GD

PATIENT
  Age: 83 Year
  Sex: Female

DRUGS (1)
  1. RANITIDINE [Suspect]

REACTIONS (3)
  - DRUG TOXICITY [None]
  - HYPONATRAEMIA [None]
  - STATUS EPILEPTICUS [None]
